FAERS Safety Report 12893442 (Version 1)
Quarter: 2016Q4

REPORT INFORMATION
  Report Type: Spontaneous
  Country: US (occurrence: US)
  Receive Date: 20161028
  Receipt Date: 20161028
  Transmission Date: 20170207
  Serious: Yes (Other)
  Sender: FDA-Public Use
  Company Number: US-ELI_LILLY_AND_COMPANY-US201610005889

PATIENT
  Sex: Female

DRUGS (2)
  1. HUMALOG MIX75/25 [Suspect]
     Active Substance: INSULIN LISPRO
     Indication: TYPE 2 DIABETES MELLITUS
     Dosage: UNK, ON A SLIDING SCALE
     Route: 065
     Dates: start: 2009
  2. HUMALOG MIX75/25 [Suspect]
     Active Substance: INSULIN LISPRO
     Dosage: UNK, ON A SLIDING SCALE
     Route: 065
     Dates: start: 2009

REACTIONS (8)
  - Blood glucose increased [Recovered/Resolved]
  - Visual acuity reduced [Unknown]
  - Kidney infection [Unknown]
  - Ovarian cyst [Recovered/Resolved]
  - Amblyopia [Unknown]
  - Nephrolithiasis [Unknown]
  - Cataract [Unknown]
  - Procedural pain [Recovered/Resolved]

NARRATIVE: CASE EVENT DATE: 2015
